FAERS Safety Report 9375571 (Version 4)
Quarter: 2013Q4

REPORT INFORMATION
  Report Type: Report from Study
  Country: NZ (occurrence: NZ)
  Receive Date: 20130628
  Receipt Date: 20131031
  Transmission Date: 20140711
  Serious: Yes (Hospitalization, Other)
  Sender: FDA-Public Use
  Company Number: NZ-JNJFOC-20130313440

PATIENT
  Age: 77 Year
  Sex: Male
  Weight: 72 kg

DRUGS (11)
  1. CANAGLIFLOZIN [Suspect]
     Route: 048
  2. CANAGLIFLOZIN [Suspect]
     Indication: TYPE 2 DIABETES MELLITUS
     Route: 048
     Dates: start: 20101201
  3. BETAHISTINE [Concomitant]
     Indication: BALANCE DISORDER
     Route: 048
     Dates: start: 200906
  4. ASPIRIN [Concomitant]
     Indication: ANTICOAGULANT THERAPY
     Route: 048
     Dates: start: 20100701
  5. INHIBACE [Concomitant]
     Indication: HYPERTENSION
     Route: 048
     Dates: start: 2008
  6. CARDIZEM [Concomitant]
     Indication: HYPERTENSION
     Route: 048
     Dates: start: 2008
  7. AMOXIL [Concomitant]
     Route: 048
  8. GLICLAZIDE [Concomitant]
     Indication: TYPE 2 DIABETES MELLITUS
     Dates: start: 2006
  9. METFORMIN [Concomitant]
     Indication: TYPE 2 DIABETES MELLITUS
     Dates: start: 2000
  10. SITAGLIPTIN [Concomitant]
     Indication: TYPE 2 DIABETES MELLITUS
     Dates: start: 200006
  11. LIPITOR [Concomitant]
     Indication: PROPHYLAXIS
     Route: 048
     Dates: start: 20120209

REACTIONS (4)
  - Bladder cancer [Recovering/Resolving]
  - Colon adenoma [Recovered/Resolved]
  - Adenocarcinoma of colon [Recovered/Resolved]
  - Prostatomegaly [Recovered/Resolved]
